FAERS Safety Report 20233767 (Version 1)
Quarter: 2021Q4

REPORT INFORMATION
  Report Type: Spontaneous
  Country: CH (occurrence: CH)
  Receive Date: 20211227
  Receipt Date: 20211227
  Transmission Date: 20220303
  Serious: Yes (Other)
  Sender: FDA-Public Use
  Company Number: CH-TEVA-2021-CH-1991101

PATIENT
  Age: 43 Year
  Sex: Female

DRUGS (13)
  1. EPIRUBICIN [Suspect]
     Active Substance: EPIRUBICIN
     Dosage: 4 CYCLES
     Route: 065
     Dates: start: 201010, end: 201012
  2. DOCETAXEL [Suspect]
     Active Substance: DOCETAXEL
     Dosage: TOTAL 6 CYCLES
     Route: 065
     Dates: start: 20161228, end: 201705
  3. LETROZOLE [Suspect]
     Active Substance: LETROZOLE
     Dosage: 2.5 MILLIGRAM DAILY;
     Route: 048
     Dates: start: 201811
  4. KADCYLA [Suspect]
     Active Substance: ADO-TRASTUZUMAB EMTANSINE
     Dosage: 5 CYCLES OF THERAPY
     Route: 042
     Dates: start: 20210906, end: 20211108
  5. HERCEPTIN [Suspect]
     Active Substance: TRASTUZUMAB
     Dosage: 4 CYCLES
     Route: 065
     Dates: start: 201101, end: 201112
  6. HERCEPTIN [Suspect]
     Active Substance: TRASTUZUMAB
     Dosage: 6 CYCLES
     Route: 065
     Dates: start: 20161228, end: 201705
  7. HERCEPTIN [Suspect]
     Active Substance: TRASTUZUMAB
     Route: 065
     Dates: start: 201705, end: 20200810
  8. TAXOL [Suspect]
     Active Substance: PACLITAXEL
     Dosage: 4 CYCLES
     Route: 065
     Dates: start: 201101, end: 201104
  9. VISCUM ALBUM FRUITING TOP [Suspect]
     Active Substance: VISCUM ALBUM FRUITING TOP
     Route: 058
     Dates: start: 201201
  10. TAMOXIFEN [Suspect]
     Active Substance: TAMOXIFEN
     Route: 048
     Dates: start: 201106, end: 201612
  11. PERJETA [Suspect]
     Active Substance: PERTUZUMAB
     Dosage: TOTAL 6 CYCLES
     Route: 065
     Dates: start: 20161228, end: 201705
  12. PERJETA [Suspect]
     Active Substance: PERTUZUMAB
     Route: 042
     Dates: start: 201705, end: 20200810
  13. DENOSUMAB [Suspect]
     Active Substance: DENOSUMAB
     Route: 058
     Dates: start: 201811

REACTIONS (2)
  - Malignant neoplasm progression [Unknown]
  - Metastases to liver [Unknown]

NARRATIVE: CASE EVENT DATE: 20161201
